FAERS Safety Report 24658417 (Version 1)
Quarter: 2024Q4

REPORT INFORMATION
  Report Type: Spontaneous
  Country: JP (occurrence: JP)
  Receive Date: 20241125
  Receipt Date: 20241125
  Transmission Date: 20250114
  Serious: Yes (Hospitalization)
  Sender: Steriscience PTE
  Company Number: JP-STERISCIENCE B.V.-2024-ST-001967

PATIENT
  Age: 28 Year
  Sex: Male
  Weight: 66 kg

DRUGS (10)
  1. MIDAZOLAM [Suspect]
     Active Substance: MIDAZOLAM
     Indication: Chills
     Dosage: 1.5 ?G/KG/MIN
     Route: 065
  2. MIDAZOLAM [Suspect]
     Active Substance: MIDAZOLAM
     Dosage: FURTHER INCREASED TO 1.6 ?G/KG/MIN
     Route: 065
  3. ROCURONIUM BROMIDE [Suspect]
     Active Substance: ROCURONIUM BROMIDE
     Indication: Chills
     Dosage: 2 MILLIGRAM, QH
     Route: 065
  4. FENTANYL [Concomitant]
     Active Substance: FENTANYL
     Indication: CSF pressure
     Dosage: UNK
     Route: 065
  5. PROPOFOL [Concomitant]
     Active Substance: PROPOFOL
     Indication: CSF pressure
     Dosage: 5.1??G/KG/MIN
     Route: 065
  6. DEXMEDETOMIDINE [Concomitant]
     Active Substance: DEXMEDETOMIDINE
     Indication: Product used for unknown indication
     Dosage: 0.6 ?G/KG/MIN
     Route: 065
  7. DEXMEDETOMIDINE [Concomitant]
     Active Substance: DEXMEDETOMIDINE
     Dosage: FURTHER INCREASED TO 1.0 ?G/KG/MIN
     Route: 065
  8. CEFAZOLIN [Concomitant]
     Active Substance: CEFAZOLIN
     Indication: Product used for unknown indication
     Dosage: UNK
     Route: 065
  9. GENTAMICIN [Concomitant]
     Active Substance: GENTAMICIN
     Indication: Product used for unknown indication
     Dosage: UNK
     Route: 065
  10. PIPERACILLIN SODIUM\TAZOBACTAM SODIUM [Concomitant]
     Active Substance: PIPERACILLIN SODIUM\TAZOBACTAM SODIUM
     Indication: Product used for unknown indication
     Dosage: UNK
     Route: 065

REACTIONS (2)
  - Hyperthermia [Unknown]
  - Drug ineffective for unapproved indication [Unknown]
